FAERS Safety Report 16989493 (Version 5)
Quarter: 2022Q2

REPORT INFORMATION
  Report Type: Spontaneous
  Country: US (occurrence: US)
  Receive Date: 20191104
  Receipt Date: 20220518
  Transmission Date: 20220720
  Serious: No
  Sender: FDA-Public Use
  Company Number: US-PFIZER INC-2019474018

PATIENT
  Age: 45 Year
  Sex: Female
  Weight: 104.3 kg

DRUGS (5)
  1. SKELAXIN [Suspect]
     Active Substance: METAXALONE
     Indication: Arthritis
     Dosage: 800 MG, 3X/DAY
     Route: 048
  2. SKELAXIN [Suspect]
     Active Substance: METAXALONE
     Indication: Intervertebral disc degeneration
     Dosage: DAILY [800MG TABLET-CAN TAKE UP TO 3 TABLETS DAILY]
  3. SKELAXIN [Suspect]
     Active Substance: METAXALONE
     Indication: Intervertebral disc protrusion
  4. SKELAXIN [Suspect]
     Active Substance: METAXALONE
     Indication: Spondylitis
  5. DICLOFENAC SODIUM [Concomitant]
     Active Substance: DICLOFENAC SODIUM
     Indication: Arthritis
     Dosage: 50 MG, 2X/DAY
     Route: 048

REACTIONS (4)
  - Pain [Not Recovered/Not Resolved]
  - Off label use [Unknown]
  - Product prescribing error [Unknown]
  - Intentional product misuse [Unknown]

NARRATIVE: CASE EVENT DATE: 20190901
